FAERS Safety Report 7078549-5 (Version None)
Quarter: 2010Q4

REPORT INFORMATION
  Report Type: 
  Country: None (occurrence: None)
  Receive Date: 20101102
  Receipt Date: 20101020
  Transmission Date: 20110411
  Serious: Yes (Other)
  Sender: FDA-Public Use
  Company Number: US-ELI_LILLY_AND_COMPANY-US200602001063

PATIENT
  Sex: Male

DRUGS (5)
  1. HUMALOG [Suspect]
     Indication: DIABETES MELLITUS
     Dosage: UNK, UNK
  2. HUMALOG [Suspect]
     Dosage: UNK, AS NEEDED
     Dates: start: 20020101
  3. MICRONASE [Concomitant]
     Indication: DIABETES MELLITUS
     Dosage: UNK, UNK
     Dates: end: 20020101
  4. LANTUS [Concomitant]
     Indication: DIABETES MELLITUS
     Dosage: 45 U, EACH EVENING
     Dates: start: 20020101
  5. LANTUS [Concomitant]
     Dosage: 90 U, EACH MORNING

REACTIONS (10)
  - BLOOD GLUCOSE DECREASED [None]
  - BLOOD GLUCOSE INCREASED [None]
  - DEVICE MALFUNCTION [None]
  - JOINT RANGE OF MOTION DECREASED [None]
  - LOSS OF CONSCIOUSNESS [None]
  - MEDICATION ERROR [None]
  - RENAL CANCER [None]
  - WOUND INFECTION STAPHYLOCOCCAL [None]
  - WRONG DRUG ADMINISTERED [None]
  - WRONG TECHNIQUE IN DRUG USAGE PROCESS [None]
